FAERS Safety Report 6181462-9 (Version None)
Quarter: 2009Q2

REPORT INFORMATION
  Report Type: 
  Country: None (occurrence: None)
  Receive Date: 20090501
  Receipt Date: 20090309
  Transmission Date: 20091009
  Serious: No
  Sender: FDA-Public Use
  Company Number: 2009001284

PATIENT
  Sex: Male

DRUGS (1)
  1. TREANDA [Suspect]
     Indication: NON-HODGKIN'S LYMPHOMA
     Dosage: (185 MG, EVERY 28 DAYS) , INTRAVENOUS
     Route: 042
     Dates: start: 20090121, end: 20090219

REACTIONS (1)
  - INFUSION SITE EXTRAVASATION [None]
